FAERS Safety Report 5450338-4 (Version None)
Quarter: 2007Q3

REPORT INFORMATION
  Report Type: 
  Country: None (occurrence: None)
  Receive Date: 20070912
  Receipt Date: 20070903
  Transmission Date: 20080115
  Serious: Yes (Life-Threatening, Hospitalization)
  Sender: FDA-Public Use
  Company Number: AT-PFIZER INC-2007073155

PATIENT
  Sex: Male

DRUGS (2)
  1. ZYVOX [Suspect]
  2. SEROPRAM [Interacting]

REACTIONS (5)
  - CARDIAC ARREST [None]
  - CARDIOVASCULAR DISORDER [None]
  - DRUG INTERACTION [None]
  - PLATELET COUNT INCREASED [None]
  - SHOCK [None]
